FAERS Safety Report 7339619-7 (Version None)
Quarter: 2011Q1

REPORT INFORMATION
  Report Type: 
  Country: None (occurrence: None)
  Receive Date: 20110308
  Receipt Date: 20110302
  Transmission Date: 20110831
  Serious: Yes (Hospitalization, Other)
  Sender: FDA-Public Use
  Company Number: US-MERCK-1011USA01583

PATIENT
  Age: 57 Year
  Sex: Female
  Weight: 55 kg

DRUGS (3)
  1. FOSAMAX [Suspect]
     Route: 048
     Dates: start: 20100726
  2. FOSAMAX [Suspect]
     Indication: OSTEOPENIA
     Route: 048
     Dates: start: 19960101, end: 20080101
  3. FOSAMAX PLUS D [Suspect]
     Indication: OSTEOPENIA
     Route: 048
     Dates: start: 20081221, end: 20100401

REACTIONS (48)
  - ARTHROPATHY [None]
  - VOMITING [None]
  - SYNOVITIS [None]
  - SYNCOPE [None]
  - OSTEOPOROSIS [None]
  - VITAMIN D DECREASED [None]
  - GINGIVAL DISORDER [None]
  - HAEMATURIA [None]
  - ERYTHEMA MULTIFORME [None]
  - TIBIA FRACTURE [None]
  - RHEUMATOID ARTHRITIS [None]
  - FOOT FRACTURE [None]
  - BRADYCARDIA [None]
  - HAEMATOMA [None]
  - JOINT EFFUSION [None]
  - GILBERT'S SYNDROME [None]
  - KYPHOSCOLIOSIS [None]
  - ARTHRALGIA [None]
  - LUNG INFILTRATION [None]
  - FEMUR FRACTURE [None]
  - CARDIAC ARREST [None]
  - OTITIS MEDIA [None]
  - BACK PAIN [None]
  - LOSS OF CONSCIOUSNESS [None]
  - HYDRONEPHROSIS [None]
  - HYPERTENSION [None]
  - EAR INFECTION [None]
  - ANAEMIA POSTOPERATIVE [None]
  - HYPERLIPIDAEMIA [None]
  - NAUSEA [None]
  - CALCULUS URETERIC [None]
  - COUGH [None]
  - PAIN IN EXTREMITY [None]
  - HYPERCHOLESTEROLAEMIA [None]
  - DEEP VEIN THROMBOSIS POSTOPERATIVE [None]
  - WOUND DRAINAGE [None]
  - PRESYNCOPE [None]
  - STERNAL FRACTURE [None]
  - ANKLE FRACTURE [None]
  - CONTUSION [None]
  - FALL [None]
  - ATROPHIC VULVOVAGINITIS [None]
  - HEPATIC FUNCTION ABNORMAL [None]
  - OEDEMA PERIPHERAL [None]
  - COMPRESSION FRACTURE [None]
  - ECCHYMOSIS [None]
  - OSTEOARTHRITIS [None]
  - GAIT DISTURBANCE [None]
